FAERS Safety Report 21731464 (Version 1)
Quarter: 2022Q4

REPORT INFORMATION
  Report Type: Spontaneous
  Country: NL (occurrence: NL)
  Receive Date: 20221215
  Receipt Date: 20221215
  Transmission Date: 20230113
  Serious: Yes (Other)
  Sender: FDA-Public Use
  Company Number: None

PATIENT
  Sex: Male
  Weight: 91 kg

DRUGS (4)
  1. SPIRONOLACTONE [Suspect]
     Active Substance: SPIRONOLACTONE
     Indication: Cardiac failure
     Dosage: HALF A TAB EVERY OTHER DAY, SPIRONOLACTON TABLET 25MG / BRAND NAME NOT SPECIFIEDSPIRONOLACTON TABLET
     Dates: start: 20220304
  2. BISOPROLOL [Suspect]
     Active Substance: BISOPROLOL
     Indication: Cardiac failure
     Dosage: 2.5 MILLIGRAM DAILY; HALF A TAB TWICE A DAY, BISOPROLOL TABLET 2.5MG / BRAND NAME NOT SPECIFIEDBISOP
     Dates: start: 20220304
  3. DAPAGLIFLOZIN [Suspect]
     Active Substance: DAPAGLIFLOZIN
     Indication: Cardiac failure
     Dosage: 10 MILLIGRAM DAILY; 1X PER DAY 1 TAB, DAPAGLIFLOZINE 10MG / FORXIGA TABLET FILM COATING 10MG, UNIT D
     Dates: start: 20220304
  4. ENTRESTO [Suspect]
     Active Substance: SACUBITRIL\VALSARTAN
     Indication: Cardiac failure
     Dosage: 2 DOSAGE FORMS DAILY; 2 X PER DAY 1 TAB, SACUBITRIL/VALSARTAN TABLET 49/51MG / ENTRESTO TABLET FILM
     Dates: start: 20220304, end: 20221115

REACTIONS (2)
  - Delusion [Recovered/Resolved]
  - Aggression [Recovered/Resolved]
